FAERS Safety Report 12500762 (Version 4)
Quarter: 2016Q3

REPORT INFORMATION
  Report Type: Spontaneous
  Country: JP (occurrence: JP)
  Receive Date: 20160627
  Receipt Date: 20160712
  Transmission Date: 20161109
  Serious: Yes (Other)
  Sender: FDA-Public Use
  Company Number: PHJP2016JP017562

PATIENT
  Age: 36 Year
  Sex: Male

DRUGS (2)
  1. IMATINIB [Suspect]
     Active Substance: IMATINIB
     Indication: CHRONIC MYELOID LEUKAEMIA
     Dosage: UNK
     Route: 065
  2. TACROLIMUS. [Suspect]
     Active Substance: TACROLIMUS
     Indication: CHRONIC MYELOID LEUKAEMIA TRANSFORMATION
     Dosage: 2.2 MG, QD
     Route: 065

REACTIONS (10)
  - Hyperkeratosis [Unknown]
  - Perivascular dermatitis [Unknown]
  - Chronic myeloid leukaemia transformation [Unknown]
  - Porokeratosis [Unknown]
  - Acanthosis [Unknown]
  - Parakeratosis [Unknown]
  - Skin lesion [Recovered/Resolved]
  - Skin exfoliation [Unknown]
  - Vasodilatation [Unknown]
  - Rash [Recovered/Resolved]
